FAERS Safety Report 5741992-8 (Version None)
Quarter: 2008Q2

REPORT INFORMATION
  Report Type: 
  Country: None (occurrence: None)
  Receive Date: 20080514
  Receipt Date: 20080514
  Transmission Date: 20081010
  Serious: Yes (Other)
  Sender: FDA-Public Use
  Company Number: None

PATIENT
  Age: 64 Year
  Sex: Female
  Weight: 96.1626 kg

DRUGS (3)
  1. PRAVASTATIN [Suspect]
     Indication: CORONARY ARTERY DISEASE
     Dosage: 10 MG NIGHTLY PO
     Route: 048
     Dates: start: 20080427, end: 20080505
  2. PRAVASTATIN [Suspect]
     Indication: FAMILIAL RISK FACTOR
     Dosage: 10 MG NIGHTLY PO
     Route: 048
     Dates: start: 20080427, end: 20080505
  3. PRAVASTATIN [Suspect]
     Indication: HYPERLIPIDAEMIA
     Dosage: 10 MG NIGHTLY PO
     Route: 048
     Dates: start: 20080427, end: 20080505

REACTIONS (1)
  - DRUG HYPERSENSITIVITY [None]
